FAERS Safety Report 19467319 (Version 1)
Quarter: 2021Q2

REPORT INFORMATION
  Report Type: Spontaneous
  Country: US (occurrence: US)
  Receive Date: 20210626
  Receipt Date: 20210626
  Transmission Date: 20210717
  Serious: Yes (Other)
  Sender: FDA-Public Use
  Company Number: None

PATIENT
  Age: 51 Year
  Sex: Female
  Weight: 61.65 kg

DRUGS (9)
  1. GABAPENTIN. [Concomitant]
     Active Substance: GABAPENTIN
  2. LEVOTHYROXINE. [Concomitant]
     Active Substance: LEVOTHYROXINE
  3. METFORMIN [Concomitant]
     Active Substance: METFORMIN HYDROCHLORIDE
  4. ATORVASTATIN [Concomitant]
     Active Substance: ATORVASTATIN
  5. DIABETICS FOOT CREAM 4 OZ [Suspect]
     Active Substance: DIMETHICONE\PETROLATUM
     Indication: DRY SKIN
     Route: 061
     Dates: start: 20210609, end: 20210609
  6. GLIPIZIDE. [Concomitant]
     Active Substance: GLIPIZIDE
  7. CALCIUM [Concomitant]
     Active Substance: CALCIUM
  8. AMLODIPINE [Concomitant]
     Active Substance: AMLODIPINE BESYLATE
  9. ST JOSEPH LOW DOSE ASPIRIN [Concomitant]

REACTIONS (1)
  - Application site rash [None]

NARRATIVE: CASE EVENT DATE: 20210608
